FAERS Safety Report 5756840-X (Version None)
Quarter: 2008Q2

REPORT INFORMATION
  Report Type: 
  Country: None (occurrence: None)
  Receive Date: 20080529
  Receipt Date: 20080515
  Transmission Date: 20081010
  Serious: No
  Sender: FDA-Public Use
  Company Number: 440025M07USA

PATIENT
  Age: 50 Year
  Sex: Male

DRUGS (1)
  1. SEROSTIM [(SOMATORPIN (RDNA ORIGIN) FOR INJECTION) ] (SOMATROPIN) [Suspect]
     Indication: CACHEXIA
     Dates: start: 20080101

REACTIONS (1)
  - NO ADVERSE EVENT [None]
